FAERS Safety Report 7733862-0 (Version None)
Quarter: 2011Q3

REPORT INFORMATION
  Report Type: 
  Country: None (occurrence: None)
  Receive Date: 20110907
  Receipt Date: 20110902
  Transmission Date: 20111222
  Serious: Yes (Other)
  Sender: FDA-Public Use
  Company Number: SE-PFIZER INC-2011205371

PATIENT
  Sex: Female

DRUGS (2)
  1. MORPHINE SULFATE [Suspect]
     Dosage: 5 MG, 2X/DAY
     Dates: end: 20110801
  2. MORPHINE SULFATE [Suspect]
     Dosage: 10 MG, 2X/DAY
     Dates: start: 20110801

REACTIONS (4)
  - UPPER LIMB FRACTURE [None]
  - CHEST DISCOMFORT [None]
  - PAIN [None]
  - MUSCLE SPASMS [None]
